FAERS Safety Report 7730371-X (Version None)
Quarter: 2011Q3

REPORT INFORMATION
  Report Type: 
  Country: None (occurrence: None)
  Receive Date: 20110906
  Receipt Date: 20110711
  Transmission Date: 20111222
  Serious: No
  Sender: FDA-Public Use
  Company Number: US-GLAXOSMITHKLINE-A0936711A

PATIENT
  Age: 59 Year
  Sex: Female

DRUGS (6)
  1. OXYCODONE HCL [Concomitant]
  2. SIMVASTATIN [Concomitant]
  3. LAMOTRIGINE [Suspect]
     Indication: PRODUCT USED FOR UNKNOWN INDICATION
     Route: 048
     Dates: start: 20050101
  4. CLONAZEPAM [Concomitant]
  5. OPIOIDS [Concomitant]
  6. CYMBALTA [Suspect]
     Indication: MAJOR DEPRESSION
     Dosage: 90MG UNKNOWN
     Route: 065
     Dates: start: 20101201

REACTIONS (8)
  - LENTIGO [None]
  - MUSCLE TWITCHING [None]
  - RASH PAPULAR [None]
  - DIZZINESS [None]
  - SKIN LESION [None]
  - RASH VESICULAR [None]
  - PURPURA [None]
  - CONTUSION [None]
